FAERS Safety Report 14970174 (Version 1)
Quarter: 2018Q2

REPORT INFORMATION
  Report Type: Spontaneous
  Country: US (occurrence: US)
  Receive Date: 20180513
  Receipt Date: 20180513
  Transmission Date: 20180711
  Serious: No
  Sender: FDA-Public Use
  Company Number: None

PATIENT
  Age: 30 Year
  Sex: Female
  Weight: 54 kg

DRUGS (5)
  1. METFORMIN ER [Concomitant]
     Active Substance: METFORMIN HYDROCHLORIDE
  2. APRISO [Concomitant]
     Active Substance: MESALAMINE
  3. MULTIVITAMIN [Concomitant]
     Active Substance: VITAMINS
  4. HUMIRA [Suspect]
     Active Substance: ADALIMUMAB
     Indication: INFLAMMATORY BOWEL DISEASE
     Dosage: ?          OTHER FREQUENCY:EVERY 2 WEEKS;?
     Dates: start: 20180222, end: 20180308
  5. HUMIRA [Suspect]
     Active Substance: ADALIMUMAB
     Indication: CROHN^S DISEASE
     Dosage: ?          OTHER FREQUENCY:EVERY 2 WEEKS;?
     Dates: start: 20180222, end: 20180308

REACTIONS (3)
  - Eye irritation [None]
  - Fatigue [None]
  - Photosensitivity reaction [None]

NARRATIVE: CASE EVENT DATE: 20180308
